FAERS Safety Report 21125178 (Version 1)
Quarter: 2022Q3

REPORT INFORMATION
  Report Type: Spontaneous
  Country: TR (occurrence: TR)
  Receive Date: 20220725
  Receipt Date: 20220725
  Transmission Date: 20221027
  Serious: Yes (Life-Threatening, Other)
  Sender: FDA-Public Use
  Company Number: TR-009507513-2207TUR006794

PATIENT
  Age: 76 Year
  Sex: Female
  Weight: 62 kg

DRUGS (1)
  1. TEMODAL [Suspect]
     Active Substance: TEMOZOLOMIDE
     Indication: Brain neoplasm
     Dosage: 120 MILLIGRAM, QD
     Route: 048
     Dates: start: 20220511, end: 20220621

REACTIONS (1)
  - Thrombocytopenia [Not Recovered/Not Resolved]

NARRATIVE: CASE EVENT DATE: 20220628
